FAERS Safety Report 21652114 (Version 1)
Quarter: 2022Q4

REPORT INFORMATION
  Report Type: Spontaneous
  Country: US (occurrence: None)
  Receive Date: 20221125
  Receipt Date: 20221125
  Transmission Date: 20230112
  Serious: Yes (Other)
  Sender: FDA-Public Use
  Company Number: None

PATIENT
  Age: 79 Year
  Sex: Male
  Weight: 123.75 kg

DRUGS (18)
  1. POTASSIUM CITRATE [Suspect]
     Active Substance: POTASSIUM CITRATE
     Indication: Renal lithiasis prophylaxis
     Dosage: OTHER QUANTITY : 2 TABLET(S);?FREQUENCY : TWICE A DAY;?
     Route: 048
     Dates: start: 20221103, end: 20221116
  2. MYCOPHENOLIC ACID [Concomitant]
     Active Substance: MYCOPHENOLIC ACID
  3. LEXAPRO [Concomitant]
     Active Substance: ESCITALOPRAM OXALATE
  4. BUPROPION [Concomitant]
     Active Substance: BUPROPION
  5. CARVEDILOL [Concomitant]
     Active Substance: CARVEDILOL
  6. LATANOPROST [Concomitant]
     Active Substance: LATANOPROST
  7. SIMVASTATIN [Concomitant]
     Active Substance: SIMVASTATIN
  8. FLOMAX [Concomitant]
     Active Substance: TAMSULOSIN HYDROCHLORIDE
  9. LANTUS [Concomitant]
     Active Substance: INSULIN GLARGINE
  10. HUMALOG [Concomitant]
     Active Substance: INSULIN LISPRO
  11. COUMADIN [Concomitant]
     Active Substance: WARFARIN SODIUM
  12. Digest [Concomitant]
  13. VITAMINS [Concomitant]
     Active Substance: VITAMINS
  14. CALCIUM [Concomitant]
     Active Substance: CALCIUM
  15. TYLENOL [Concomitant]
     Active Substance: ACETAMINOPHEN
  16. COLACE [Concomitant]
     Active Substance: DOCUSATE SODIUM
  17. SALONPAS PAIN RELIEF [Concomitant]
     Active Substance: MENTHOL\METHYL SALICYLATE
  18. CBD gummies(for pain) [Concomitant]

REACTIONS (1)
  - Blood glucose increased [None]

NARRATIVE: CASE EVENT DATE: 20221115
